FAERS Safety Report 4650165-1 (Version None)
Quarter: 2005Q2

REPORT INFORMATION
  Report Type: 
  Country: None (occurrence: None)
  Receive Date: 20050428
  Receipt Date: 20050418
  Transmission Date: 20051028
  Serious: Yes (Other)
  Sender: FDA-Public Use
  Company Number: 2005062423

PATIENT
  Sex: Female

DRUGS (1)
  1. BEXTRA [Suspect]
     Indication: PAIN IN EXTREMITY
     Dosage: 20 MG, ORAL
     Route: 048
     Dates: start: 20040401, end: 20040401

REACTIONS (4)
  - ABDOMINAL PAIN [None]
  - ADVERSE EVENT [None]
  - PAIN IN EXTREMITY [None]
  - TACHYCARDIA [None]
